FAERS Safety Report 8032345-0 (Version None)
Quarter: 2012Q1

REPORT INFORMATION
  Report Type: 
  Country: None (occurrence: None)
  Receive Date: 20120109
  Receipt Date: 20120109
  Transmission Date: 20120608
  Serious: No
  Sender: FDA-Public Use
  Company Number: None

PATIENT
  Age: 81 Year
  Sex: Male
  Weight: 83 kg

DRUGS (1)
  1. CEFTRIAXONE [Suspect]
     Indication: URINARY TRACT INFECTION
     Dosage: 2 GM EVERY DAY IV
     Route: 042
     Dates: start: 20111020, end: 20111021

REACTIONS (2)
  - LARYNGOSPASM [None]
  - TACHYPNOEA [None]
